FAERS Safety Report 19150802 (Version 5)
Quarter: 2021Q2

REPORT INFORMATION
  Report Type: Report from Study
  Country: None (occurrence: US)
  Receive Date: 20210419
  Receipt Date: 20210518
  Transmission Date: 20210717
  Serious: Yes (Hospitalization, Other)
  Sender: FDA-Public Use
  Company Number: US-ABBVIE-21K-163-3860373-00

PATIENT
  Age: 68 Year
  Sex: Female
  Weight: 68.1 kg

DRUGS (4)
  1. ASPIRIN. [Suspect]
     Active Substance: ASPIRIN
     Indication: PRODUCT USED FOR UNKNOWN INDICATION
     Route: 065
  2. OMEPRAZOLE. [Concomitant]
     Active Substance: OMEPRAZOLE
     Indication: DYSPEPSIA
  3. HUMIRA [Suspect]
     Active Substance: ADALIMUMAB
     Indication: ARTHRITIS ENTEROPATHIC
     Dosage: CITRATE FREE
     Route: 058
     Dates: start: 20210316
  4. HUMIRA [Suspect]
     Active Substance: ADALIMUMAB
     Indication: CROHN^S DISEASE
     Dosage: CITRATE FREE
     Route: 058
     Dates: start: 200701, end: 202007

REACTIONS (12)
  - Gastric ulcer [Unknown]
  - Crohn^s disease [Recovered/Resolved]
  - Hip arthroplasty [Recovered/Resolved]
  - Intervertebral disc protrusion [Recovering/Resolving]
  - Back pain [Not Recovered/Not Resolved]
  - Osteoarthritis [Recovering/Resolving]
  - Post procedural complication [Unknown]
  - Rectal haemorrhage [Recovered/Resolved]
  - Hip arthroplasty [Recovered/Resolved]
  - Discomfort [Recovering/Resolving]
  - Crohn^s disease [Unknown]
  - Arthralgia [Recovered/Resolved]

NARRATIVE: CASE EVENT DATE: 202005
